FAERS Safety Report 9516640 (Version 1)
Quarter: 2013Q3

REPORT INFORMATION
  Report Type: Spontaneous
  Country: FR (occurrence: FR)
  Receive Date: 20130911
  Receipt Date: 20130911
  Transmission Date: 20140515
  Serious: Yes (Hospitalization, Other)
  Sender: FDA-Public Use
  Company Number: FR-GLAXOSMITHKLINE-B0920192A

PATIENT
  Age: 20 Year
  Sex: Female

DRUGS (2)
  1. LAMICTAL [Suspect]
     Indication: EPILEPSY
     Dosage: 100MG PER DAY
     Route: 048
     Dates: start: 2008
  2. TRIELLA [Suspect]
     Indication: ORAL CONTRACEPTION
     Route: 048
     Dates: start: 2008, end: 20120615

REACTIONS (5)
  - Drug ineffective [Unknown]
  - Unwanted pregnancy [Unknown]
  - Abortion induced [Unknown]
  - Exposure during pregnancy [Unknown]
  - Drug interaction [Unknown]
